FAERS Safety Report 14684514 (Version 1)
Quarter: 2018Q1

REPORT INFORMATION
  Report Type: Spontaneous
  Country: GB (occurrence: GB)
  Receive Date: 20180327
  Receipt Date: 20180327
  Transmission Date: 20180509
  Serious: Yes (Hospitalization)
  Sender: FDA-Public Use
  Company Number: GB-MISSION PHARMACAL COMPANY-2044617

PATIENT
  Age: 92 Year
  Sex: Female

DRUGS (10)
  1. BINOSTO [Suspect]
     Active Substance: ALENDRONATE SODIUM
     Indication: PRODUCT USED FOR UNKNOWN INDICATION
     Route: 065
     Dates: start: 2014
  2. SODIUM VALPROATE [Concomitant]
     Active Substance: VALPROATE SODIUM
     Route: 065
     Dates: start: 2014
  3. FUROSEMIDE. [Concomitant]
     Active Substance: FUROSEMIDE
     Route: 065
  4. AMLODIPINE [Concomitant]
     Active Substance: AMLODIPINE BESYLATE
     Route: 065
  5. ASPIRIN. [Concomitant]
     Active Substance: ASPIRIN
     Route: 065
  6. CITALOPRAM [Concomitant]
     Active Substance: CITALOPRAM HYDROBROMIDE
     Route: 065
     Dates: start: 2014
  7. ATORVASTATIN [Concomitant]
     Active Substance: ATORVASTATIN
     Route: 065
  8. CALCIUM CARBONATE AND VITAMIN D [Concomitant]
     Active Substance: CALCIUM CARBONATE\VITAMIN D
     Route: 065
  9. MACROGOL [Concomitant]
     Active Substance: POLYETHYLENE GLYCOLS
     Route: 065
  10. DIPROBASE [Concomitant]
     Active Substance: CHLOROCRESOL
     Route: 065

REACTIONS (1)
  - Femur fracture [None]

NARRATIVE: CASE EVENT DATE: 20161219
